FAERS Safety Report 24145540 (Version 1)
Quarter: 2024Q3

REPORT INFORMATION
  Report Type: Spontaneous
  Country: DE (occurrence: DE)
  Receive Date: 20240729
  Receipt Date: 20240729
  Transmission Date: 20241017
  Serious: Yes (Life-Threatening)
  Sender: TEVA
  Company Number: DE-DCGMA-24203605

PATIENT
  Age: 85 Year
  Sex: Female

DRUGS (1)
  1. METHOTREXATE [Suspect]
     Active Substance: METHOTREXATE
     Indication: Polymyalgia rheumatica
     Route: 048

REACTIONS (7)
  - Disturbance in attention [Unknown]
  - Acute kidney injury [Unknown]
  - Pancytopenia [Unknown]
  - Hepatic enzyme increased [Unknown]
  - Sepsis [Unknown]
  - Neutropenia [Unknown]
  - Toxicity to various agents [Unknown]

NARRATIVE: CASE EVENT DATE: 20240621
